FAERS Safety Report 6403451-9 (Version None)
Quarter: 2009Q4

REPORT INFORMATION
  Report Type: 
  Country: None (occurrence: None)
  Receive Date: 20091015
  Receipt Date: 20091015
  Transmission Date: 20100525
  Serious: Yes (Other)
  Sender: FDA-Public Use
  Company Number: None

PATIENT
  Age: 72 Year
  Sex: Male
  Weight: 70.3075 kg

DRUGS (1)
  1. LEVAQUIN [Suspect]
     Indication: SINUSITIS
     Dosage: 21 TABLETS 1 DAILY IN AM PO
     Route: 048
     Dates: start: 20090918, end: 20090929

REACTIONS (2)
  - ARTHRALGIA [None]
  - TENDONITIS [None]
